FAERS Safety Report 8870455 (Version 1)
Quarter: 2012Q4

REPORT INFORMATION
  Report Type: 
  Country: US (occurrence: US)
  Receive Date: 20121026
  Receipt Date: 20121026
  Transmission Date: 20130627
  Serious: No
  Sender: FDA-Public Use
  Company Number: US-AMGEN-USASP2012047613

PATIENT
  Sex: Female

DRUGS (13)
  1. ENBREL [Suspect]
     Indication: RHEUMATOID ARTHRITIS
     Dosage: 50 mg, qwk
     Route: 058
  2. METHOTREXATE [Concomitant]
     Dosage: UNK
  3. CLONAZEPAM [Concomitant]
     Dosage: UNK
  4. LOVASTATIN [Concomitant]
     Dosage: UNK
  5. SEROQUEL [Concomitant]
     Dosage: UNK
  6. ABILIFY [Concomitant]
     Dosage: UNK
  7. VENLAFAXINE [Concomitant]
     Dosage: UNK
  8. PLAQUENIL                          /00072602/ [Concomitant]
     Dosage: UNK
  9. SYMBICORT [Concomitant]
     Dosage: UNK
  10. ALBUTEROL                          /00139501/ [Concomitant]
     Dosage: UNK
  11. VITAMIN C                          /00008001/ [Concomitant]
     Dosage: UNK
  12. LISINOPRIL [Concomitant]
     Dosage: UNK
  13. METFORMIN [Concomitant]
     Dosage: UNK

REACTIONS (1)
  - Abscess oral [Unknown]
